FAERS Safety Report 4404453-4 (Version None)
Quarter: 2004Q3

REPORT INFORMATION
  Report Type: 
  Country: None (occurrence: None)
  Receive Date: 20040721
  Receipt Date: 20040721
  Transmission Date: 20050211
  Serious: Yes (Hospitalization)
  Sender: FDA-Public Use
  Company Number: None

PATIENT
  Age: 42 Year
  Sex: Female
  Weight: 47.2 kg

DRUGS (6)
  1. DENILEUKIN (18 MG/ KG) [Suspect]
     Indication: LUNG NEOPLASM MALIGNANT
     Dosage: 850 MG/ Q 21 DAYS IV
     Route: 042
  2. LOVENOX [Concomitant]
  3. COLACE [Concomitant]
  4. CARDIZEM CD [Concomitant]
  5. VICODIN [Concomitant]
  6. ATROVENT [Concomitant]

REACTIONS (2)
  - HYPOXIA [None]
  - OXYGEN SATURATION DECREASED [None]
